FAERS Safety Report 25787133 (Version 1)
Quarter: 2025Q3

REPORT INFORMATION
  Report Type: Report from Study
  Country: IN (occurrence: IN)
  Receive Date: 20250910
  Receipt Date: 20250910
  Transmission Date: 20251020
  Serious: Yes (Hospitalization)
  Sender: ALEXION PHARMACEUTICALS
  Company Number: IN-AstraZeneca-CH-00946575A

PATIENT
  Sex: Male
  Weight: 58 kg

DRUGS (1)
  1. OSIMERTINIB [Suspect]
     Active Substance: OSIMERTINIB
     Indication: Non-small cell lung cancer
     Dosage: 80 MILLIGRAM, QD

REACTIONS (6)
  - Headache [Unknown]
  - Gait disturbance [Unknown]
  - Blindness [Unknown]
  - Dizziness [Unknown]
  - Pain in extremity [Unknown]
  - Deafness [Unknown]
